FAERS Safety Report 7631866-X (Version None)
Quarter: 2011Q3

REPORT INFORMATION
  Report Type: 
  Country: None (occurrence: None)
  Receive Date: 20110725
  Receipt Date: 20110420
  Transmission Date: 20111222
  Serious: No
  Sender: FDA-Public Use
  Company Number: US-BRISTOL-MYERS SQUIBB COMPANY-15688278

PATIENT
  Age: 80 Year
  Sex: Female

DRUGS (8)
  1. LANOXIN [Concomitant]
  2. ASCORBIC ACID [Concomitant]
  3. LIPITOR [Concomitant]
  4. SPIRONOLACTONE [Concomitant]
  5. ATIVAN [Concomitant]
  6. LOVAZA [Concomitant]
  7. COUMADIN [Suspect]
  8. ASPIRIN [Concomitant]

REACTIONS (4)
  - ASTHENIA [None]
  - NAUSEA [None]
  - GASTROINTESTINAL PAIN [None]
  - DIZZINESS [None]
